FAERS Safety Report 8399463-9 (Version None)
Quarter: 2012Q2

REPORT INFORMATION
  Report Type: 
  Country: None (occurrence: None)
  Receive Date: 20120531
  Receipt Date: 20120523
  Transmission Date: 20120825
  Serious: Yes (Other)
  Sender: FDA-Public Use
  Company Number: CH-TEVA-340572ISR

PATIENT
  Age: 6 Year
  Sex: Male

DRUGS (1)
  1. AMOXICILLIN [Suspect]
     Indication: OTITIS MEDIA
     Route: 048
     Dates: start: 20120417

REACTIONS (4)
  - RASH ERYTHEMATOUS [None]
  - LIP SWELLING [None]
  - DYSGEUSIA [None]
  - TYPE I HYPERSENSITIVITY [None]
